FAERS Safety Report 22153166 (Version 1)
Quarter: 2023Q1

REPORT INFORMATION
  Report Type: Spontaneous
  Country: FR (occurrence: FR)
  Receive Date: 20230329
  Receipt Date: 20230329
  Transmission Date: 20230418
  Serious: Yes (Death, Hospitalization, Other)
  Sender: FDA-Public Use
  Company Number: FR-ASTELLAS-2023US005955

PATIENT
  Age: 67 Year
  Sex: Male

DRUGS (12)
  1. MORPHINE SULFATE [Suspect]
     Active Substance: MORPHINE SULFATE
     Indication: Product used for unknown indication
     Dosage: UNK UNK, UNKNOWN FREQ.
     Route: 065
  2. PADCEV [Suspect]
     Active Substance: ENFORTUMAB VEDOTIN-EJFV
     Indication: Bladder cancer
     Dosage: UNK
     Route: 065
     Dates: start: 20230127, end: 20230203
  3. PREDNISONE [Concomitant]
     Active Substance: PREDNISONE
     Indication: Product used for unknown indication
     Dosage: 2.5 MG, UNKNOWN FREQ.
  4. KARDEGIC [Concomitant]
     Active Substance: ASPIRIN DL-LYSINE
     Indication: Product used for unknown indication
     Dosage: 160 MG, UNKNOWN FREQ.
  5. LIPTRUZET [Concomitant]
     Active Substance: ATORVASTATIN CALCIUM\EZETIMIBE
     Indication: Product used for unknown indication
     Dosage: UNK UNK, UNKNOWN FREQ. (10/6/20)
  6. RETACRIT [Concomitant]
     Active Substance: EPOETIN ALFA-EPBX
     Indication: Product used for unknown indication
     Dosage: 30 0000 UI/0,75ML, UNKNOWN FREQ. (PRE-FILLED SYRINGE)
  7. AMLODIPINE [Concomitant]
     Active Substance: AMLODIPINE BESYLATE
     Indication: Product used for unknown indication
     Dosage: 5 MG, UNKNOWN FREQ.
  8. NEORAL [Concomitant]
     Active Substance: CYCLOSPORINE
     Indication: Product used for unknown indication
     Dosage: UNK UNK, UNKNOWN FREQ.
  9. CHOLECALCIFEROL [Concomitant]
     Active Substance: CHOLECALCIFEROL
     Indication: Product used for unknown indication
     Dosage: 100 INTERNATIONAL UNIT
  10. DEGARELIX [Concomitant]
     Active Substance: DEGARELIX
     Indication: Bladder transitional cell carcinoma
     Dosage: UNK UNK, UNKNOWN FREQ.
  11. DEGARELIX [Concomitant]
     Active Substance: DEGARELIX
     Indication: Prostate cancer
  12. OXYCODONE HYDROCHLORIDE [Concomitant]
     Active Substance: OXYCODONE HYDROCHLORIDE
     Indication: Product used for unknown indication
     Dosage: 10 MG/ML, UNKNOWN FREQ.

REACTIONS (13)
  - Febrile neutropenia [Fatal]
  - Staphylococcal sepsis [Fatal]
  - Febrile bone marrow aplasia [Fatal]
  - Septic shock [Fatal]
  - Staphylococcal infection [Fatal]
  - Acute kidney injury [Unknown]
  - Abdominal distension [Unknown]
  - Hypotension [Not Recovered/Not Resolved]
  - Constipation [Unknown]
  - Vomiting [Recovering/Resolving]
  - Confusional state [Not Recovered/Not Resolved]
  - Back pain [Unknown]
  - Off label use [Unknown]

NARRATIVE: CASE EVENT DATE: 20230127
